FAERS Safety Report 4719514-X (Version None)
Quarter: 2005Q3

REPORT INFORMATION
  Report Type: 
  Country: None (occurrence: None)
  Receive Date: 20050719
  Receipt Date: 20050707
  Transmission Date: 20060218
  Serious: No
  Sender: FDA-Public Use
  Company Number: TAP2005Q01136

PATIENT
  Age: 81 Year
  Sex: Female

DRUGS (4)
  1. PREVACID [Suspect]
     Indication: DYSPEPSIA
     Dosage: 30 MG, 1 IN 1 D, PER ORAL
     Route: 048
     Dates: start: 20050707
  2. PREVACID [Suspect]
     Indication: GASTRIC PH DECREASED
     Dosage: 30 MG, 1 IN 1 D, PER ORAL
     Route: 048
     Dates: start: 20050707
  3. TIMOLOL MALEATE [Concomitant]
  4. DIAMOX [Concomitant]

REACTIONS (2)
  - CONDITION AGGRAVATED [None]
  - VISION BLURRED [None]
